FAERS Safety Report 6414800-X (Version None)
Quarter: 2009Q4

REPORT INFORMATION
  Report Type: 
  Country: None (occurrence: None)
  Receive Date: 20091026
  Receipt Date: 20091026
  Transmission Date: 20100525
  Serious: Yes (Other)
  Sender: FDA-Public Use
  Company Number: None

PATIENT
  Age: 52 Year
  Sex: Female

DRUGS (1)
  1. NUBAIN [Suspect]
     Indication: MIGRAINE
     Dosage: 20 MG ONCE IM
     Route: 030
     Dates: start: 20090728, end: 20090728

REACTIONS (5)
  - CHEST DISCOMFORT [None]
  - FORMICATION [None]
  - MENTAL STATUS CHANGES [None]
  - MUSCLE RIGIDITY [None]
  - NO THERAPEUTIC RESPONSE [None]
